FAERS Safety Report 16616252 (Version 1)
Quarter: 2019Q3

REPORT INFORMATION
  Report Type: Spontaneous
  Country: FR (occurrence: FR)
  Receive Date: 20190723
  Receipt Date: 20190723
  Transmission Date: 20191004
  Serious: Yes (Hospitalization)
  Sender: FDA-Public Use
  Company Number: FR-ABBVIE-19P-056-2862668-00

PATIENT
  Age: 52 Year
  Sex: Female

DRUGS (1)
  1. ENANTONE LP [Suspect]
     Active Substance: LEUPROLIDE ACETATE
     Indication: ENDOMETRIOSIS
     Route: 065

REACTIONS (3)
  - Vertigo [Not Recovered/Not Resolved]
  - Arthralgia [Not Recovered/Not Resolved]
  - Purpura [Not Recovered/Not Resolved]
